FAERS Safety Report 13307708 (Version 5)
Quarter: 2017Q3

REPORT INFORMATION
  Report Type: Spontaneous
  Country: US (occurrence: US)
  Receive Date: 20170308
  Receipt Date: 20170720
  Transmission Date: 20171127
  Serious: Yes (Hospitalization, Other)
  Sender: FDA-Public Use
  Company Number: US-ACTELION-A-US2017-149232

PATIENT
  Age: 52 Year
  Sex: Male
  Weight: 79.37 kg

DRUGS (6)
  1. TRACLEER [Suspect]
     Active Substance: BOSENTAN
     Indication: PULMONARY ARTERIAL HYPERTENSION
     Dosage: 62.5 MG, BID
     Route: 048
     Dates: start: 20170110
  2. TRACLEER [Suspect]
     Active Substance: BOSENTAN
     Dosage: 125 MG, BID
     Route: 048
  3. SILDENAFIL CITRATE. [Concomitant]
     Active Substance: SILDENAFIL CITRATE
  4. REMODULIN [Concomitant]
     Active Substance: TREPROSTINIL
     Route: 042
  5. WARFARIN [Concomitant]
     Active Substance: WARFARIN
  6. ADCIRCA [Concomitant]
     Active Substance: TADALAFIL
     Dosage: 40 MG, UNK

REACTIONS (9)
  - Malaise [Unknown]
  - Lung transplant [Unknown]
  - Pulmonary arterial hypertension [Unknown]
  - Presyncope [Unknown]
  - Cardiac disorder [Unknown]
  - Condition aggravated [Unknown]
  - Dyspnoea [Unknown]
  - Transplant evaluation [Unknown]
  - Fluid overload [Unknown]

NARRATIVE: CASE EVENT DATE: 20170121
